APPROVED DRUG PRODUCT: PROCAINAMIDE HYDROCHLORIDE
Active Ingredient: PROCAINAMIDE HYDROCHLORIDE
Strength: 100MG/ML
Dosage Form/Route: INJECTABLE;INJECTION
Application: A088530 | Product #001
Applicant: SMITH AND NEPHEW SOLOPAK DIV SMITH AND NEPHEW
Approved: Mar 4, 1985 | RLD: No | RS: No | Type: DISCN